FAERS Safety Report 12269736 (Version 11)
Quarter: 2025Q3

REPORT INFORMATION
  Report Type: Report from Study
  Country: JP (occurrence: JP)
  Receive Date: 20160414
  Receipt Date: 20250809
  Transmission Date: 20251020
  Serious: Yes (Other)
  Sender: ALEXION PHARMACEUTICALS
  Company Number: JP-ALXN-A201601803AA

PATIENT
  Age: 18 Month
  Sex: Female

DRUGS (11)
  1. STRENSIQ [Suspect]
     Active Substance: ASFOTASE ALFA
     Indication: Hypophosphatasia
     Dosage: 2 MILLIGRAM/KILOGRAM, TIW
     Dates: start: 20150911, end: 20170605
  2. STRENSIQ [Suspect]
     Active Substance: ASFOTASE ALFA
     Dosage: 1 MILLIGRAM/KILOGRAM, SIX TIMES/WEEK
     Dates: start: 20170606, end: 20170905
  3. STRENSIQ [Suspect]
     Active Substance: ASFOTASE ALFA
     Dosage: 2 MILLIGRAM/KILOGRAM, TIW
     Dates: start: 20170906, end: 20171016
  4. STRENSIQ [Suspect]
     Active Substance: ASFOTASE ALFA
     Dosage: 1 MILLIGRAM/KILOGRAM, TIW
     Dates: start: 20171017, end: 20171114
  5. STRENSIQ [Suspect]
     Active Substance: ASFOTASE ALFA
     Dosage: 3 MILLIGRAM/KILOGRAM, TIW
     Dates: start: 20171115
  6. STRENSIQ [Suspect]
     Active Substance: ASFOTASE ALFA
     Dosage: 2 MILLIGRAM/KILOGRAM, TIW
     Dates: start: 20230909
  7. STRENSIQ [Suspect]
     Active Substance: ASFOTASE ALFA
     Dosage: 3 MILLIGRAM/KILOGRAM, TIW
     Route: 065
     Dates: start: 20210909
  8. STRENSIQ [Suspect]
     Active Substance: ASFOTASE ALFA
     Dosage: 2 MILLIGRAM/KILOGRAM, TIW
     Route: 065
     Dates: start: 20230909
  9. ONEALFA [Concomitant]
     Active Substance: ALFACALCIDOL
     Indication: Product used for unknown indication
     Dosage: 0.3 MICROGRAM, QD
     Dates: start: 20141029, end: 20150216
  10. CALCIUM LACTATE [Concomitant]
     Active Substance: CALCIUM LACTATE
     Indication: Product used for unknown indication
     Dates: start: 20141029, end: 20150216
  11. SODIUM PHOSPHATE, DIBASIC\SODIUM PHOSPHATE, MONOBASIC [Concomitant]
     Active Substance: SODIUM PHOSPHATE, DIBASIC\SODIUM PHOSPHATE, MONOBASIC
     Indication: Product used for unknown indication
     Dosage: 40-50MG, QID
     Dates: start: 20141212, end: 20150305

REACTIONS (4)
  - Febrile convulsion [Recovered/Resolved]
  - Nephrocalcinosis [Unknown]
  - Loose tooth [Recovered/Resolved with Sequelae]
  - Exanthema subitum [Recovered/Resolved]

NARRATIVE: CASE EVENT DATE: 20160306
